FAERS Safety Report 15355738 (Version 3)
Quarter: 2018Q4

REPORT INFORMATION
  Report Type: Spontaneous
  Country: US (occurrence: US)
  Receive Date: 20180906
  Receipt Date: 20181019
  Transmission Date: 20190204
  Serious: No
  Sender: FDA-Public Use
  Company Number: CN-ASTRAZENECA-2018SF11420

PATIENT
  Age: 74 Year
  Sex: Male

DRUGS (4)
  1. ELMIRON [Concomitant]
     Active Substance: PENTOSAN POLYSULFATE SODIUM
     Indication: CYSTITIS INTERSTITIAL
     Dosage: 100.0MG UNKNOWN
  2. SYNTHROID [Concomitant]
     Active Substance: LEVOTHYROXINE SODIUM
     Dosage: UNK
  3. NEXIUM 24HR [Suspect]
     Active Substance: ESOMEPRAZOLE MAGNESIUM
     Indication: DYSPEPSIA
     Dosage: UNKNOWN DOSE, AS NEEDED
     Route: 048
  4. GLIPIZIDE. [Concomitant]
     Active Substance: GLIPIZIDE
     Indication: DIABETES MELLITUS
     Dosage: UNK

REACTIONS (4)
  - Poor quality product administered [Unknown]
  - Intentional product misuse [Unknown]
  - Product packaging issue [Unknown]
  - Product colour issue [Unknown]
